FAERS Safety Report 4591052-7 (Version None)
Quarter: 2005Q1

REPORT INFORMATION
  Report Type: 
  Country: None (occurrence: None)
  Receive Date: 20050222
  Receipt Date: 20050222
  Transmission Date: 20050727
  Serious: Yes (Disabling)
  Sender: FDA-Public Use
  Company Number: None

PATIENT
  Age: 46 Year
  Weight: 88.905 kg

DRUGS (9)
  1. REBATRON   1200MG   SCHRIG [Suspect]
     Indication: HEPATITIS C
     Dosage: 1200 DAILY   PO DAILY   ORAL
     Route: 048
     Dates: start: 20000927, end: 20010928
  2. INTERFERON   15 UNITS 3 TIMES WEEK   SCHRING [Suspect]
     Dosage: 15 UNITS  3 TIMES WEEK  SUBCUTANEO
     Route: 058
     Dates: start: 20000927, end: 20010928
  3. ANTIDEPRESSANTS 5 DIFFERENT ONES [Concomitant]
  4. PERCOLONE [Concomitant]
  5. XANAX [Concomitant]
  6. MORPHINE [Concomitant]
  7. XANAX [Concomitant]
  8. PROVIGAL [Concomitant]
  9. TIAGABINE [Concomitant]

REACTIONS (4)
  - AMNESIA [None]
  - PAIN [None]
  - POLYARTHRITIS [None]
  - VISUAL DISTURBANCE [None]
